FAERS Safety Report 7926706-5 (Version None)
Quarter: 2011Q4

REPORT INFORMATION
  Report Type: 
  Country: None (occurrence: None)
  Receive Date: 20111116
  Receipt Date: 20111102
  Transmission Date: 20120403
  Serious: Yes (Hospitalization, Other)
  Sender: FDA-Public Use
  Company Number: 2011MA015975

PATIENT
  Sex: Female
  Weight: 65.7716 kg

DRUGS (11)
  1. GLIMEPIRIDE [Concomitant]
  2. NITROGLYCERIN [Concomitant]
  3. DIGOXIN [Suspect]
     Indication: HEART RATE ABNORMAL
     Dosage: 0.125 MG;QD
     Dates: start: 20020906, end: 20080501
  4. POTASSIUM CHLORIDE [Concomitant]
  5. SYNTHROID [Concomitant]
  6. GLYPIZIDE [Concomitant]
  7. METOPROLOL TARTRATE [Concomitant]
  8. AMARYL [Concomitant]
  9. AMIODARONE HCL [Concomitant]
  10. BACLOFEN [Concomitant]
  11. PREMARIN [Concomitant]

REACTIONS (32)
  - HYPERTENSION [None]
  - WEIGHT DECREASED [None]
  - ARRHYTHMIA [None]
  - MALAISE [None]
  - ABDOMINAL PAIN [None]
  - ASTHENIA [None]
  - BALANCE DISORDER [None]
  - EMOTIONAL DISORDER [None]
  - CARDIAC FAILURE CONGESTIVE [None]
  - CHEST PAIN [None]
  - ABDOMINAL DISTENSION [None]
  - ELECTROCARDIOGRAM ST SEGMENT ABNORMAL [None]
  - PAIN [None]
  - BRADYCARDIA [None]
  - CARDIOACTIVE DRUG LEVEL BELOW THERAPEUTIC [None]
  - PALPITATIONS [None]
  - NAUSEA [None]
  - MENTAL IMPAIRMENT [None]
  - CORONARY ARTERY DISEASE [None]
  - DIVERTICULUM [None]
  - FATIGUE [None]
  - TOXICITY TO VARIOUS AGENTS [None]
  - RENAL FAILURE CHRONIC [None]
  - DIVERTICULITIS [None]
  - CHEST DISCOMFORT [None]
  - CARDIOMEGALY [None]
  - SICK SINUS SYNDROME [None]
  - GENERAL PHYSICAL HEALTH DETERIORATION [None]
  - DECREASED APPETITE [None]
  - SYNCOPE [None]
  - VOMITING [None]
  - PRODUCT CONTAMINATION [None]
